FAERS Safety Report 18880503 (Version 2)
Quarter: 2021Q1

REPORT INFORMATION
  Report Type: Spontaneous
  Country: US (occurrence: US)
  Receive Date: 20210211
  Receipt Date: 20210216
  Transmission Date: 20210420
  Serious: No
  Sender: FDA-Public Use
  Company Number: US-GLAXOSMITHKLINE-US2021005906

PATIENT
  Sex: Female

DRUGS (1)
  1. ADVAIR DISKUS [Suspect]
     Active Substance: FLUTICASONE PROPIONATE\SALMETEROL XINAFOATE
     Indication: ASTHMA
     Dosage: 1 PUFF(S), 1D, 250/50
     Route: 055

REACTIONS (9)
  - Respiration abnormal [Unknown]
  - Chest discomfort [Not Recovered/Not Resolved]
  - Product complaint [Unknown]
  - Product dose omission issue [Unknown]
  - Vomiting [Unknown]
  - Oropharyngeal discomfort [Unknown]
  - Lung disorder [Unknown]
  - Cough [Not Recovered/Not Resolved]
  - Oropharyngeal pain [Recovering/Resolving]
